FAERS Safety Report 17398559 (Version 2)
Quarter: 2020Q3

REPORT INFORMATION
  Report Type: Spontaneous
  Country: DE (occurrence: DE)
  Receive Date: 20200210
  Receipt Date: 20200720
  Transmission Date: 20201102
  Serious: Yes (Other)
  Sender: FDA-Public Use
  Company Number: DE-MYLANLABS-2020M1014368

PATIENT
  Sex: Female

DRUGS (21)
  1. VALSARTAN DURA 160 MG FILMTABLETTEN [Suspect]
     Active Substance: VALSARTAN
     Dosage: 160 MILLIGRAM, QD
     Dates: start: 20160913
  2. VALSARTAN DURA 80 MG FILMTABLETTEN [Suspect]
     Active Substance: VALSARTAN
     Dosage: 160 MILLIGRAM, QD
     Dates: start: 20150821, end: 20150930
  3. VALSARTAN TAD [Suspect]
     Active Substance: VALSARTAN
     Dosage: 160 MILLIGRAM, QD
     Dates: start: 20160621, end: 20160622
  4. VALSARTAN TAD [Concomitant]
     Indication: PRODUCT USED FOR UNKNOWN INDICATION
     Dosage: 160 MILLIGRAM, QD
     Dates: start: 20170109, end: 20170110
  5. VALSARTAN TAD [Concomitant]
     Dosage: 160 MILLIGRAM, QD
     Dates: start: 20180417, end: 20180426
  6. VALSARTAN HEUMANN [Concomitant]
     Active Substance: VALSARTAN
     Indication: PRODUCT USED FOR UNKNOWN INDICATION
     Dosage: 160 MILLIGRAM, QD
     Dates: start: 20170503, end: 20170505
  7. VALSARTAN DURA 80 MG FILMTABLETTEN [Suspect]
     Active Substance: VALSARTAN
     Dosage: 160 MILLIGRAM, QD
     Dates: start: 20150330
  8. VALSARTAN HEXAL [Suspect]
     Active Substance: VALSARTAN
     Indication: PRODUCT USED FOR UNKNOWN INDICATION
     Dosage: 160 MILLIGRAM, QD
     Dates: start: 20130408, end: 20130416
  9. VALSARTAN DURA 80 MG FILMTABLETTEN [Suspect]
     Active Substance: VALSARTAN
     Dosage: 160 MILLIGRAM, QD
     Dates: start: 20150701, end: 20150731
  10. VALSARTAN TAD [Suspect]
     Active Substance: VALSARTAN
     Dosage: 160 MILLIGRAM, QD
     Dates: start: 20160411
  11. VALSARTAN TAD [Concomitant]
     Dosage: 160 MILLIGRAM, QD
     Dates: start: 20170714, end: 20170717
  12. VALSARTAN DURA 80 MG FILMTABLETTEN [Suspect]
     Active Substance: VALSARTAN
     Indication: PRODUCT USED FOR UNKNOWN INDICATION
     Dosage: 160 MILLIGRAM, QD
     Dates: start: 20140929, end: 20141001
  13. VALSARTAN DURA 80 MG FILMTABLETTEN [Suspect]
     Active Substance: VALSARTAN
     Dosage: 160 MILLIGRAM, QD
     Dates: start: 20151020
  14. VALSARTAN DURA 160 MG FILMTABLETTEN [Suspect]
     Active Substance: VALSARTAN
     Indication: PRODUCT USED FOR UNKNOWN INDICATION
     Dosage: 160 MILLIGRAM, QD
     Dates: start: 20160704, end: 20160705
  15. VALSARTAN DURA 80 MG FILMTABLETTEN [Suspect]
     Active Substance: VALSARTAN
     Dosage: 160 MILLIGRAM, QD
     Dates: start: 20141021, end: 20141023
  16. VALSARTAN HEXAL [Suspect]
     Active Substance: VALSARTAN
     Dosage: 160 MILLIGRAM, QD
     Dates: start: 20130610, end: 20130612
  17. DIOVAN [Suspect]
     Active Substance: VALSARTAN
     Indication: PRODUCT USED FOR UNKNOWN INDICATION
     Dosage: 160 MILLIGRAM, QD
     Dates: start: 20130920, end: 20140214
  18. VALSARTAN TAD [Concomitant]
     Dosage: 160 MILLIGRAM, QD
     Dates: start: 20171005, end: 20171016
  19. DIOVAN [Suspect]
     Active Substance: VALSARTAN
     Dosage: 160 MILLIGRAM, QD
     Dates: start: 20140612, end: 20140618
  20. VALSARTAN TAD [Suspect]
     Active Substance: VALSARTAN
     Indication: PRODUCT USED FOR UNKNOWN INDICATION
     Dosage: 160 MILLIGRAM, QD
     Dates: start: 20151222, end: 20151223
  21. VALSARTAN TAD [Suspect]
     Active Substance: VALSARTAN
     Dosage: 160 MILLIGRAM, QD
     Dates: start: 20160225

REACTIONS (6)
  - Fear of disease [Unknown]
  - Sleep disorder [Unknown]
  - Panic attack [Unknown]
  - Mental impairment [Unknown]
  - Loss of personal independence in daily activities [Unknown]
  - Depression [Unknown]
